FAERS Safety Report 5000613-2 (Version None)
Quarter: 2006Q2

REPORT INFORMATION
  Report Type: 
  Country: None (occurrence: None)
  Receive Date: 20060501
  Receipt Date: 20060417
  Transmission Date: 20061013
  Serious: Yes (Other)
  Sender: FDA-Public Use
  Company Number: 2006052325

PATIENT
  Age: 63 Year
  Sex: Male
  Weight: 106.5953 kg

DRUGS (11)
  1. LYRICA [Suspect]
     Indication: NEUROPATHY
     Dosage: 225 MG (75 MG, 3 IN 1 D), ORAL
     Route: 048
     Dates: start: 20060414, end: 20060415
  2. ACTOS [Concomitant]
  3. METFORMIN [Concomitant]
  4. NEURONTIN [Concomitant]
  5. CYMBALTA [Concomitant]
  6. MINOCYCLINE HCL [Concomitant]
  7. LASIX [Concomitant]
  8. VYTORIN [Concomitant]
  9. TRICOR [Concomitant]
  10. POTASSIUM (POTASSIUM) [Concomitant]
  11. ACETYLSALICYLIC ACID SRT [Concomitant]

REACTIONS (4)
  - DIZZINESS [None]
  - INSOMNIA [None]
  - MUSCLE SPASMS [None]
  - SPEECH DISORDER [None]
